FAERS Safety Report 6982252-7 (Version None)
Quarter: 2010Q3

REPORT INFORMATION
  Report Type: 
  Country: None (occurrence: None)
  Receive Date: 20100914
  Receipt Date: 20091216
  Transmission Date: 20110219
  Serious: No
  Sender: FDA-Public Use
  Company Number: US-PFIZER INC-2009304862

PATIENT
  Sex: Female
  Weight: 159 kg

DRUGS (4)
  1. LYRICA [Suspect]
     Indication: NEURALGIA
     Dosage: 75MG IN THE MORNING AND 150MG AT NIGHT
     Route: 048
  2. ROBAXIN [Concomitant]
     Dosage: UNK
  3. TRAMADOL [Concomitant]
     Dosage: UNK
  4. DEMADEX [Concomitant]
     Indication: CARDIAC FAILURE
     Dosage: UNK

REACTIONS (3)
  - DECREASED APPETITE [None]
  - DRY MOUTH [None]
  - WEIGHT INCREASED [None]
